FAERS Safety Report 10423970 (Version 1)
Quarter: 2014Q3

REPORT INFORMATION
  Report Type: Spontaneous
  Country: IN (occurrence: IN)
  Receive Date: 20140902
  Receipt Date: 20140902
  Transmission Date: 20150326
  Serious: Yes (Death, Other)
  Sender: FDA-Public Use
  Company Number: IN-ASTELLAS-2014JP019032

PATIENT
  Age: 70 Year
  Sex: Female

DRUGS (1)
  1. ADVAGRAF [Suspect]
     Active Substance: TACROLIMUS
     Indication: PROPHYLAXIS AGAINST TRANSPLANT REJECTION
     Dosage: UNK, ONCE DAILY
     Route: 048

REACTIONS (3)
  - Sepsis [Fatal]
  - Transplant dysfunction [Fatal]
  - Decubitus ulcer [Fatal]
